FAERS Safety Report 22347881 (Version 2)
Quarter: 2023Q2

REPORT INFORMATION
  Report Type: Report from Study
  Country: US (occurrence: US)
  Receive Date: 20230522
  Receipt Date: 20230607
  Transmission Date: 20230721
  Serious: Yes (Hospitalization, Other)
  Sender: FDA-Public Use
  Company Number: US-ABBVIE-4772102

PATIENT
  Sex: Female

DRUGS (2)
  1. SKYRIZI [Suspect]
     Active Substance: RISANKIZUMAB-RZAA
     Indication: Psoriasis
     Dosage: FORM STRENGTH: 150 MILLIGRAM?WEEK 4,?FIRST ADMIN DATE: MAY 2023
     Route: 058
  2. SKYRIZI [Suspect]
     Active Substance: RISANKIZUMAB-RZAA
     Dosage: WEEK 0,?FORM STRENGTH: 150 MILLIGRAM,?FIRST ADMIN DATE- 13 APR 2023, LAST ADMIN DATE: 13 APR 2023.
     Route: 058

REACTIONS (4)
  - Cardiac operation [Unknown]
  - Road traffic accident [Unknown]
  - Venous injury [Unknown]
  - Venous haemorrhage [Unknown]

NARRATIVE: CASE EVENT DATE: 20230101
